FAERS Safety Report 8160817-7 (Version None)
Quarter: 2012Q1

REPORT INFORMATION
  Report Type: 
  Country: None (occurrence: None)
  Receive Date: 20120223
  Receipt Date: 20120220
  Transmission Date: 20120608
  Serious: Yes (Death, Hospitalization)
  Sender: FDA-Public Use
  Company Number: PHHY2012AU004264

PATIENT
  Sex: Female

DRUGS (24)
  1. FLUVAX [Concomitant]
     Dates: start: 20100327
  2. ADVANTAN [Concomitant]
     Dosage: APPLY THIN FILM ONCE DAILY
     Route: 061
  3. MIRTAZAPINE [Concomitant]
     Dosage: 1 DF, IN THE NIGHT
     Route: 048
  4. RESOURCE 2.0 FIBRE LIQUID [Concomitant]
     Dosage: 80 ML, TID
     Route: 048
  5. LACTULOSE [Concomitant]
     Dosage: 20 ML, BID
     Route: 048
  6. LASIX [Concomitant]
  7. LANOXIN [Concomitant]
     Dosage: 1 DF, UNK
     Route: 048
  8. NEXIUM [Concomitant]
     Dosage: 1 DF, UNK
     Route: 048
  9. VENTOLIN [Concomitant]
     Dosage: 2-8 PUFFS
  10. WARFARIN SODIUM [Concomitant]
  11. FLUVAX [Concomitant]
     Dosage: UNK
     Dates: start: 20110319
  12. PANADOL OSTEO [Concomitant]
     Dosage: 2 DF, TID
     Route: 048
  13. CITRACAL + D [Concomitant]
     Dosage: 1 DF, IN THE NIGHT
     Route: 048
  14. WARFARIN SODIUM [Concomitant]
     Dosage: UNK UKN, PRN
     Route: 048
  15. RISPERIDONE [Concomitant]
     Dosage: 0.5 DF, PRN
     Route: 048
  16. DERMEXANE [Concomitant]
     Route: 061
  17. MAXOLON [Concomitant]
     Dosage: 1 DF, TID
     Route: 048
  18. SORBOLENE CREAM WITH 10% PEANUT OIL [Concomitant]
     Route: 061
  19. ZOLEDRONOC ACID [Suspect]
     Dosage: 5 MG/ 100 ML YEARLY
     Route: 042
     Dates: start: 20101223
  20. PREDNISOLONE [Concomitant]
     Dosage: 4 DF, UNK
     Route: 048
  21. SERETIDE MDI [Concomitant]
     Dosage: 2 DF, BID
  22. TWOCAL HN [Concomitant]
     Dosage: 60 ML, QID
     Route: 048
  23. CRESTOR [Concomitant]
     Dosage: 1 DF, UNK
     Route: 048
  24. OXAZEPAM [Concomitant]
     Dosage: 1 DF, TID
     Route: 048

REACTIONS (11)
  - VENTRICULAR ARRHYTHMIA [None]
  - ACUTE MYOCARDIAL INFARCTION [None]
  - RENAL IMPAIRMENT [None]
  - ATRIAL FIBRILLATION [None]
  - VOMITING [None]
  - RENAL FAILURE [None]
  - DEPRESSED LEVEL OF CONSCIOUSNESS [None]
  - CHEST PAIN [None]
  - BACK PAIN [None]
  - BUNDLE BRANCH BLOCK RIGHT [None]
  - HYPOTENSION [None]
